FAERS Safety Report 8366799-7 (Version None)
Quarter: 2012Q2

REPORT INFORMATION
  Report Type: 
  Country: None (occurrence: None)
  Receive Date: 20120517
  Receipt Date: 20120509
  Transmission Date: 20120825
  Serious: Yes (Other)
  Sender: FDA-Public Use
  Company Number: US-ROCHE-1040240

PATIENT
  Sex: Female
  Weight: 86.26 kg

DRUGS (3)
  1. ASPIRIN [Concomitant]
  2. SYNTHROID [Concomitant]
  3. ACCUTANE [Suspect]
     Indication: PRODUCT USED FOR UNKNOWN INDICATION
     Dates: start: 19820101, end: 19850101

REACTIONS (5)
  - INJURY [None]
  - DIVERTICULITIS [None]
  - CROHN'S DISEASE [None]
  - INTESTINAL OBSTRUCTION [None]
  - DEPRESSION [None]
